FAERS Safety Report 18886953 (Version 1)
Quarter: 2021Q1

REPORT INFORMATION
  Report Type: Spontaneous
  Country: ES (occurrence: ES)
  Receive Date: 20210212
  Receipt Date: 20210212
  Transmission Date: 20210420
  Serious: Yes (Hospitalization)
  Sender: FDA-Public Use
  Company Number: ES-TEVA-2021-ES-1878277

PATIENT
  Age: 35 Year
  Sex: Female

DRUGS (4)
  1. OMEPRAZOL (2141A) [Concomitant]
     Active Substance: OMEPRAZOLE
     Indication: HELICOBACTER INFECTION
     Dosage: 20 MG
     Route: 048
     Dates: start: 20201126, end: 20201128
  2. METRONIDAZOL (1966A) [Suspect]
     Active Substance: METRONIDAZOLE
     Indication: HELICOBACTER INFECTION
     Dosage: 500 MG
     Route: 048
     Dates: start: 20201126, end: 20201128
  3. CLARITROMICINA (967A) [Suspect]
     Active Substance: CLARITHROMYCIN
     Indication: HELICOBACTER INFECTION
     Dosage: 500 MG
     Route: 048
     Dates: start: 20201126, end: 20201128
  4. AMOXICILINA (108A) [Suspect]
     Active Substance: AMOXICILLIN
     Indication: HELICOBACTER INFECTION
     Dosage: 1 GRAM
     Route: 048
     Dates: start: 20201126, end: 20201128

REACTIONS (1)
  - Generalised tonic-clonic seizure [Recovered/Resolved]

NARRATIVE: CASE EVENT DATE: 20201128
